FAERS Safety Report 5587161-6 (Version None)
Quarter: 2008Q1

REPORT INFORMATION
  Report Type: 
  Country: None (occurrence: None)
  Receive Date: 20080110
  Receipt Date: 20071229
  Transmission Date: 20080703
  Serious: Yes (Hospitalization, Other)
  Sender: FDA-Public Use
  Company Number: US-PFIZER INC-2008000256

PATIENT
  Sex: Male
  Weight: 73.636 kg

DRUGS (8)
  1. NEURONTIN [Suspect]
     Indication: COMPLEX REGIONAL PAIN SYNDROME
  2. NEURONTIN [Suspect]
     Indication: CARPAL TUNNEL SYNDROME
  3. NEURONTIN [Suspect]
     Indication: TREMOR
  4. LYRICA [Suspect]
     Indication: COMPLEX REGIONAL PAIN SYNDROME
     Dates: start: 20070901, end: 20071121
  5. LYRICA [Suspect]
     Indication: CARPAL TUNNEL SYNDROME
  6. LYRICA [Suspect]
     Indication: TREMOR
  7. VALIUM [Concomitant]
     Dosage: DAILY DOSE:60MG
  8. PERCOCET [Concomitant]

REACTIONS (14)
  - BURNING SENSATION [None]
  - DISTURBANCE IN ATTENTION [None]
  - DRUG INEFFECTIVE FOR UNAPPROVED INDICATION [None]
  - DYSPHAGIA [None]
  - DYSPNOEA [None]
  - EPISTAXIS [None]
  - HYPOAESTHESIA [None]
  - INSOMNIA [None]
  - NASAL DISCOMFORT [None]
  - OEDEMA PERIPHERAL [None]
  - OVERDOSE [None]
  - SEXUAL DYSFUNCTION [None]
  - UNEVALUABLE EVENT [None]
  - VISION BLURRED [None]
